FAERS Safety Report 9229182 (Version 1)
Quarter: 2013Q2

REPORT INFORMATION
  Report Type: Spontaneous
  Country: US (occurrence: US)
  Receive Date: 20130412
  Receipt Date: 20130412
  Transmission Date: 20140414
  Serious: Yes (Hospitalization, Other)
  Sender: FDA-Public Use
  Company Number: US-ASTELLAS-2011US005249

PATIENT
  Sex: Male
  Weight: 55 kg

DRUGS (2)
  1. PROGRAF [Suspect]
     Indication: RENAL TRANSPLANT
     Dosage: 7 MG, BID
     Route: 048
     Dates: start: 20070807
  2. PROGRAF [Suspect]
     Dosage: 7 MG, UID/QD
     Route: 065

REACTIONS (4)
  - Diabetes mellitus [Unknown]
  - Hypertension [Unknown]
  - Muscle spasms [Unknown]
  - Blood glucose increased [Unknown]
